FAERS Safety Report 5322110-7 (Version None)
Quarter: 2007Q2

REPORT INFORMATION
  Report Type: 
  Country: None (occurrence: None)
  Receive Date: 20070507
  Receipt Date: 20070406
  Transmission Date: 20071010
  Serious: Yes (Hospitalization)
  Sender: FDA-Public Use
  Company Number: 2007US-07157

PATIENT
  Age: 86 Year
  Sex: Female

DRUGS (1)
  1. NITROFURANTOIN [Suspect]
     Indication: URINARY TRACT INFECTION
     Dosage: ORAL
     Route: 048
     Dates: start: 20070119, end: 20070122

REACTIONS (12)
  - ABDOMINAL PAIN UPPER [None]
  - DYSPHAGIA [None]
  - DYSPNOEA [None]
  - FALL [None]
  - LARYNGEAL INFLAMMATION [None]
  - LARYNGOTRACHEAL OEDEMA [None]
  - OEDEMA PERIPHERAL [None]
  - PAIN IN EXTREMITY [None]
  - RASH [None]
  - SCAPULA FRACTURE [None]
  - WEIGHT DECREASED [None]
  - WRIST FRACTURE [None]
